FAERS Safety Report 5571110-0 (Version None)
Quarter: 2007Q4

REPORT INFORMATION
  Report Type: 
  Country: None (occurrence: None)
  Receive Date: 20071221
  Receipt Date: 20071218
  Transmission Date: 20080405
  Serious: Yes (Hospitalization)
  Sender: FDA-Public Use
  Company Number: US-MERCK-0712USA08109

PATIENT
  Age: 59 Year
  Sex: Male

DRUGS (5)
  1. VYTORIN [Suspect]
     Indication: BLOOD CHOLESTEROL ABNORMAL
     Route: 048
     Dates: start: 20060101, end: 20061201
  2. VYTORIN [Suspect]
     Route: 048
     Dates: start: 20070101
  3. IMDUR [Concomitant]
     Route: 065
  4. LOPRESSOR [Concomitant]
     Route: 065
  5. ASPIRIN [Concomitant]
     Route: 065

REACTIONS (3)
  - BACK PAIN [None]
  - CHEST PAIN [None]
  - MUSCLE SPASMS [None]
